FAERS Safety Report 16246734 (Version 3)
Quarter: 2019Q2

REPORT INFORMATION
  Report Type: Report from Study
  Country: None (occurrence: CH)
  Receive Date: 20190427
  Receipt Date: 20190624
  Transmission Date: 20190711
  Serious: No
  Sender: FDA-Public Use
  Company Number: CH-ABBVIE-19S-151-2620073-00

PATIENT
  Age: 79 Year
  Sex: Female

DRUGS (5)
  1. DUODOPA [Suspect]
     Active Substance: CARBIDOPA\LEVODOPA
     Dosage: MD: 8 ML, CRD: 3.9 ML/H, CRT: 2.5 ML/H, ED: 1.5 ML 24 H THERAPY
     Route: 050
     Dates: start: 20180126, end: 20190416
  2. DUODOPA [Suspect]
     Active Substance: CARBIDOPA\LEVODOPA
     Dosage: MD: 8 ML, CRD: 4.5 ML/H, CRN: 2.7 ML/H, ED: 1.5 ML 24 H THERAPY
     Route: 050
     Dates: start: 20190620
  3. DUODOPA [Suspect]
     Active Substance: CARBIDOPA\LEVODOPA
     Dosage: MD: 8 ML, CRD: 3.9 ML/H, CRN: 2.5 ML/H, ED: 1.5 ML 24 H THERAPY
     Route: 050
     Dates: start: 20170812, end: 20180126
  4. DUODOPA [Suspect]
     Active Substance: CARBIDOPA\LEVODOPA
     Dosage: MD: 8 ML, CRD: 4.3 ML/H, CRN: 2.7 ML/H, ED: 1.5 ML 24 H THERAPY
     Route: 050
     Dates: start: 20190416, end: 20190620
  5. DUODOPA [Suspect]
     Active Substance: CARBIDOPA\LEVODOPA
     Indication: PARKINSON^S DISEASE
     Route: 050
     Dates: start: 20170807, end: 20170812

REACTIONS (10)
  - Device alarm issue [Unknown]
  - Stoma site pain [Not Recovered/Not Resolved]
  - Cognitive disorder [Recovering/Resolving]
  - Freezing phenomenon [Recovering/Resolving]
  - Polyneuropathy [Not Recovered/Not Resolved]
  - Dystonia [Recovering/Resolving]
  - Fall [Recovered/Resolved]
  - Balance disorder [Recovering/Resolving]
  - Asthenia [Recovering/Resolving]
  - Muscle rigidity [Recovering/Resolving]

NARRATIVE: CASE EVENT DATE: 20170807
